FAERS Safety Report 19244234 (Version 1)
Quarter: 2021Q2

REPORT INFORMATION
  Report Type: Report from Study
  Country: IN (occurrence: IN)
  Receive Date: 20210512
  Receipt Date: 20210512
  Transmission Date: 20210717
  Serious: Yes (Death, Other)
  Sender: FDA-Public Use
  Company Number: IN-BRISTOL-MYERS SQUIBB COMPANY-BMS-2021-045838

PATIENT
  Age: 38 Year
  Sex: Male

DRUGS (1)
  1. NIVOLUMAB [Suspect]
     Active Substance: NIVOLUMAB
     Indication: NON-SMALL CELL LUNG CANCER
     Dosage: 270 MILLIGRAM, Q2WK
     Route: 042
     Dates: start: 20210421, end: 20210423

REACTIONS (1)
  - Death [Fatal]

NARRATIVE: CASE EVENT DATE: 20210423
